FAERS Safety Report 7371653-3 (Version None)
Quarter: 2011Q1

REPORT INFORMATION
  Report Type: 
  Country: None (occurrence: None)
  Receive Date: 20110324
  Receipt Date: 20110310
  Transmission Date: 20110831
  Serious: Yes (Other)
  Sender: FDA-Public Use
  Company Number: JP-JNJFOC-20110306325

PATIENT
  Age: 40 Year
  Sex: Male
  Weight: 42 kg

DRUGS (3)
  1. REMICADE [Suspect]
     Dosage: 1ST DOSE
     Route: 042
  2. REMICADE [Suspect]
     Indication: CROHN'S DISEASE
     Dosage: 2ND DOSE
     Route: 042
  3. REMICADE [Suspect]
     Dosage: 3RD DOSE
     Route: 042

REACTIONS (3)
  - INFUSION RELATED REACTION [None]
  - MYALGIA [None]
  - BLOOD CREATINE PHOSPHOKINASE INCREASED [None]
